FAERS Safety Report 9327732 (Version 1)
Quarter: 2013Q2

REPORT INFORMATION
  Report Type: Spontaneous
  Country: US (occurrence: US)
  Receive Date: 20130604
  Receipt Date: 20130604
  Transmission Date: 20140414
  Serious: No
  Sender: FDA-Public Use
  Company Number: US-PFIZER INC-2013167367

PATIENT
  Age: 71 Year
  Sex: Female
  Weight: 83.45 kg

DRUGS (1)
  1. ATORVASTATIN CALCIUM [Suspect]
     Indication: BLOOD CHOLESTEROL INCREASED
     Dosage: 20 MG, UNK
     Route: 048
     Dates: end: 2013

REACTIONS (9)
  - Insomnia [Unknown]
  - Dyspepsia [Unknown]
  - Dry mouth [Unknown]
  - Tooth loss [Unknown]
  - Dental caries [Unknown]
  - Cough [Unknown]
  - Myalgia [Unknown]
  - Pain [Unknown]
  - Drug intolerance [Unknown]
